FAERS Safety Report 9337240 (Version 1)
Quarter: 2013Q2

REPORT INFORMATION
  Report Type: Other
  Country: FR (occurrence: FR)
  Receive Date: 20130607
  Receipt Date: 20130607
  Transmission Date: 20140414
  Serious: Yes (Other)
  Sender: FDA-Public Use
  Company Number: FR-FRI-1000045653

PATIENT
  Sex: Male

DRUGS (2)
  1. NEBIVOLOL [Suspect]
  2. ACENOCOUMAROL [Suspect]
     Route: 048

REACTIONS (1)
  - Acquired haemophilia [Unknown]
